FAERS Safety Report 18438402 (Version 2)
Quarter: 2020Q4

REPORT INFORMATION
  Report Type: Spontaneous
  Country: US (occurrence: US)
  Receive Date: 20201028
  Receipt Date: 20201126
  Transmission Date: 20210114
  Serious: No
  Sender: FDA-Public Use
  Company Number: US-ASTRAZENECA-2020SF39115

PATIENT
  Age: 22831 Day
  Sex: Female

DRUGS (4)
  1. FASENRA [Suspect]
     Active Substance: BENRALIZUMAB
     Indication: ASTHMA
     Route: 058
     Dates: start: 20180118
  2. SYMBICORT [Suspect]
     Active Substance: BUDESONIDE\FORMOTEROL FUMARATE DIHYDRATE
     Dosage: UNKNOWN UNKNOWN
     Route: 055
  3. PROBIOTICS [Concomitant]
     Active Substance: PROBIOTICS NOS
  4. AUGMENTIN [Concomitant]
     Active Substance: AMOXICILLIN\CLAVULANATE POTASSIUM

REACTIONS (4)
  - Sinusitis [Recovered/Resolved]
  - Weight decreased [Unknown]
  - Fatigue [Unknown]
  - Peak expiratory flow rate decreased [Recovered/Resolved]

NARRATIVE: CASE EVENT DATE: 20200921
